FAERS Safety Report 11212701 (Version 1)
Quarter: 2015Q2

REPORT INFORMATION
  Report Type: Spontaneous
  Country: NO (occurrence: NO)
  Receive Date: 20150623
  Receipt Date: 20150623
  Transmission Date: 20150821
  Serious: Yes (Other)
  Sender: FDA-Public Use
  Company Number: NO-TEVA-571164ISR

PATIENT
  Age: 64 Year
  Sex: Male
  Weight: 75 kg

DRUGS (1)
  1. ATORVASTATIN TEVA [Suspect]
     Active Substance: ATORVASTATIN
     Indication: PROPHYLAXIS
     Dosage: 20 MILLIGRAM DAILY;
     Dates: start: 20140520

REACTIONS (10)
  - Anxiety [Recovering/Resolving]
  - Listless [Recovering/Resolving]
  - Aggression [Recovering/Resolving]
  - Loss of libido [Recovering/Resolving]
  - Insomnia [Recovering/Resolving]
  - Erectile dysfunction [Recovering/Resolving]
  - Suicidal ideation [Recovering/Resolving]
  - Arthralgia [Recovering/Resolving]
  - Memory impairment [Recovering/Resolving]
  - Depression [Recovering/Resolving]

NARRATIVE: CASE EVENT DATE: 20141120
